FAERS Safety Report 4892422-X (Version None)
Quarter: 2006Q1

REPORT INFORMATION
  Report Type: 
  Country: None (occurrence: None)
  Receive Date: 20060126
  Receipt Date: 20050330
  Transmission Date: 20060701
  Serious: Yes (Hospitalization, Disabling)
  Sender: FDA-Public Use
  Company Number: US-MERCK-0503USA05255

PATIENT
  Age: 56 Year
  Sex: Female
  Weight: 60 kg

DRUGS (4)
  1. VIOXX [Suspect]
     Indication: ARTHRITIS
     Route: 048
     Dates: start: 19990901, end: 20030301
  2. DIOVAN [Concomitant]
     Route: 048
  3. GEMFIBROZIL [Concomitant]
     Route: 065
  4. FLUOXETINE [Concomitant]
     Route: 065

REACTIONS (7)
  - CEREBROVASCULAR ACCIDENT [None]
  - DIABETES MELLITUS NON-INSULIN-DEPENDENT [None]
  - DIZZINESS [None]
  - DYSARTHRIA [None]
  - GASTROENTERITIS [None]
  - HYPOGLYCAEMIA [None]
  - INJURY [None]
